FAERS Safety Report 6466414-3 (Version None)
Quarter: 2009Q4

REPORT INFORMATION
  Report Type: 
  Country: None (occurrence: None)
  Receive Date: 20091202
  Receipt Date: 20081110
  Transmission Date: 20100525
  Serious: No
  Sender: FDA-Public Use
  Company Number: US-AMGEN-KDL318105

PATIENT
  Sex: Female

DRUGS (6)
  1. ENBREL [Suspect]
     Indication: DRUG USE FOR UNKNOWN INDICATION
     Route: 058
     Dates: start: 20081027
  2. MINOCYCLINE HCL [Concomitant]
  3. IMURAN [Concomitant]
  4. AMARYL [Concomitant]
  5. PREDNISONE [Concomitant]
  6. LISINOPRIL AND HYDROCHLOROTHIAZIDE [Concomitant]

REACTIONS (3)
  - DIABETES MELLITUS [None]
  - HYPOAESTHESIA [None]
  - PARAESTHESIA [None]
